FAERS Safety Report 6579680-0 (Version None)
Quarter: 2010Q1

REPORT INFORMATION
  Report Type: 
  Country: None (occurrence: None)
  Receive Date: 20100212
  Receipt Date: 20100202
  Transmission Date: 20100710
  Serious: Yes (Hospitalization)
  Sender: FDA-Public Use
  Company Number: DE-ABBOTT-10P-062-0624382-00

PATIENT
  Sex: Female
  Weight: 39 kg

DRUGS (2)
  1. HUMIRA [Suspect]
     Indication: CROHN'S DISEASE
     Route: 058
     Dates: start: 20091112
  2. NOVALGIN [Concomitant]
     Indication: PROCEDURAL PAIN
     Route: 048
     Dates: start: 20100106

REACTIONS (6)
  - ANAL INFLAMMATION [None]
  - ANAL SKIN TAGS [None]
  - BACTERIAL DACRYOCYSTITIS [None]
  - HYPERAEMIA [None]
  - INDURATION [None]
  - PROCTALGIA [None]
